FAERS Safety Report 9282348 (Version 1)
Quarter: 2013Q2

REPORT INFORMATION
  Report Type: Spontaneous
  Country: CN (occurrence: CN)
  Receive Date: 20130510
  Receipt Date: 20130510
  Transmission Date: 20140414
  Serious: Yes (Hospitalization)
  Sender: FDA-Public Use
  Company Number: CN-PFIZER INC-2013144187

PATIENT
  Age: 60 Year
  Sex: Female

DRUGS (3)
  1. CORDARONE [Suspect]
     Indication: SUPRAVENTRICULAR EXTRASYSTOLES
     Dosage: 0.2 G, TWICE DAILY
     Route: 048
     Dates: start: 20120328
  2. CORDARONE [Suspect]
     Indication: ATRIAL TACHYCARDIA
  3. CORDARONE [Suspect]
     Indication: UPPER RESPIRATORY TRACT INFECTION

REACTIONS (8)
  - Tachycardia [Recovering/Resolving]
  - Hypertension [Recovering/Resolving]
  - Vomiting [Recovering/Resolving]
  - Chest pain [Recovering/Resolving]
  - Syncope [Recovering/Resolving]
  - Female sexual arousal disorder [Recovering/Resolving]
  - Chills [Recovering/Resolving]
  - Off label use [Unknown]
